FAERS Safety Report 9008576 (Version 2)
Quarter: 2013Q4

REPORT INFORMATION
  Report Type: Spontaneous
  Country: US (occurrence: US)
  Receive Date: 20130111
  Receipt Date: 20131119
  Transmission Date: 20140711
  Serious: Yes (Hospitalization)
  Sender: FDA-Public Use
  Company Number: US-BAYER-2013-003679

PATIENT
  Age: 20 Year
  Sex: Female

DRUGS (2)
  1. YAZ [Suspect]
     Indication: CONTRACEPTION
  2. HYDROCODONE [Concomitant]
     Dosage: UNK MG, UNK
     Dates: start: 20090212

REACTIONS (7)
  - Hepatectomy [None]
  - Cholecystectomy [None]
  - Injury [None]
  - Pain [None]
  - Pain [None]
  - Focal nodular hyperplasia [None]
  - Cholecystitis chronic [None]
